FAERS Safety Report 9238417 (Version 4)
Quarter: 2013Q4

REPORT INFORMATION
  Report Type: Report from Study
  Country: JP (occurrence: JP)
  Receive Date: 20130418
  Receipt Date: 20131017
  Transmission Date: 20140711
  Serious: Yes (Hospitalization, Other)
  Sender: FDA-Public Use
  Company Number: JP-PFIZER INC-2013116776

PATIENT
  Age: 68 Year
  Sex: Female
  Weight: 36 kg

DRUGS (22)
  1. XALKORI [Suspect]
     Indication: LUNG ADENOCARCINOMA
     Dosage: 250 MG, 2X/DAY
     Route: 048
     Dates: start: 20120602, end: 20120609
  2. XALKORI [Suspect]
     Dosage: 250 MG, 1X/DAY
     Route: 048
     Dates: start: 20120614, end: 20120627
  3. XALKORI [Suspect]
     Dosage: 200 MG, 2X/DAY
     Route: 048
     Dates: start: 20120628, end: 20120801
  4. CALBLOCK [Concomitant]
     Dosage: 16 MG, 1X/DAY
     Route: 048
     Dates: end: 20120614
  5. ARTIST [Concomitant]
     Dosage: 10 MG, 1X/DAY
     Route: 048
     Dates: end: 20120614
  6. LIPITOR [Concomitant]
     Dosage: 10 MG, 1X/DAY
     Route: 048
     Dates: end: 20120614
  7. NU LOTAN [Concomitant]
     Dosage: 50 MG, 1X/DAY
     Route: 048
     Dates: end: 20120726
  8. LENDORMIN [Concomitant]
     Dosage: 0.25 MG, 1X/DAY
     Route: 048
     Dates: end: 20120614
  9. OMEPRAL [Concomitant]
     Dosage: 20 MG, 1X/DAY
     Route: 048
     Dates: end: 20120614
  10. PURSENNID [Concomitant]
     Dosage: 12 MG, AS NEEDED
     Route: 048
     Dates: end: 20120703
  11. RACOL [Concomitant]
     Dosage: 400 ML, 3X/DAY
     Route: 048
     Dates: start: 20120629
  12. MAGMITT [Concomitant]
     Dosage: 330 MG, 3X/DAY
     Route: 048
  13. HYPEN [Concomitant]
     Dosage: 200 MG, 2X/DAY
     Route: 048
  14. CAFFEINE [Concomitant]
     Dosage: 0.15 G, 2X/DAY
     Route: 048
  15. MUCOSOLVAN [Concomitant]
     Dosage: 15 MG, 3X/DAY
     Route: 048
     Dates: start: 20120608, end: 20120611
  16. CLEANAL [Concomitant]
     Dosage: 400 MG, 3X/DAY
     Route: 048
     Dates: start: 20120608, end: 20120618
  17. DECADRON [Concomitant]
     Dosage: 2 MG, 1X/DAY
     Route: 048
     Dates: start: 20120609, end: 20120613
  18. LOPEMIN [Concomitant]
     Dosage: 1 MG, AS NEEDED
     Route: 048
     Dates: start: 20120609, end: 20120614
  19. RISPERDAL [Concomitant]
     Dosage: 0.5 MG, AS NEEDED
     Route: 048
  20. ROZEREM [Concomitant]
     Dosage: 8 MG, 1X/DAY
     Route: 048
  21. TAKEPRON [Concomitant]
     Dosage: 15 MG, 1X/DAY
     Route: 048
     Dates: start: 20120612
  22. LAXOBERON [Concomitant]
     Dosage: 10 ML, AS NEEDED
     Route: 048
     Dates: start: 20120617

REACTIONS (7)
  - Dyspnoea [Recovering/Resolving]
  - Decreased appetite [Recovering/Resolving]
  - Malaise [Recovering/Resolving]
  - Dysphagia [Recovering/Resolving]
  - Pleural effusion [Recovering/Resolving]
  - Dyspnoea [Recovering/Resolving]
  - Performance status decreased [Recovering/Resolving]
